FAERS Safety Report 9159822 (Version 1)
Quarter: 2013Q1

REPORT INFORMATION
  Report Type: Spontaneous
  Country: US (occurrence: None)
  Receive Date: 20130219
  Receipt Date: 20130219
  Transmission Date: 20140127
  Serious: Yes (Hospitalization, Other)
  Sender: FDA-Public Use
  Company Number: KV201300031

PATIENT
  Age: 35 Year
  Sex: Female

DRUGS (3)
  1. MAKENA [Suspect]
     Indication: PREMATURE DELIVERY
     Route: 030
     Dates: start: 20120927, end: 201210
  2. MAKENA [Suspect]
     Indication: TWIN PREGNANCY
     Route: 030
     Dates: start: 20120927, end: 201210
  3. MAKENA [Suspect]
     Indication: OFF LABEL USE
     Route: 030
     Dates: start: 20120927, end: 201210

REACTIONS (5)
  - Cervical incompetence [None]
  - Premature rupture of membranes [None]
  - Twin pregnancy [None]
  - Off label use [None]
  - Exposure during pregnancy [None]
